FAERS Safety Report 6833038-5 (Version None)
Quarter: 2010Q3

REPORT INFORMATION
  Report Type: 
  Country: None (occurrence: None)
  Receive Date: 20100712
  Receipt Date: 20070321
  Transmission Date: 20110219
  Serious: Yes (Other)
  Sender: FDA-Public Use
  Company Number: US-PFIZER INC-2007024534

PATIENT
  Sex: Female

DRUGS (2)
  1. CHANTIX [Suspect]
     Indication: EX-TOBACCO USER
     Dates: start: 20061201, end: 20070101
  2. ANASTROZOLE [Concomitant]

REACTIONS (4)
  - ABNORMAL DREAMS [None]
  - DEPRESSION [None]
  - EUPHORIC MOOD [None]
  - WEIGHT INCREASED [None]
